FAERS Safety Report 17641295 (Version 7)
Quarter: 2020Q3

REPORT INFORMATION
  Report Type: Report from Study
  Country: US (occurrence: US)
  Receive Date: 20200408
  Receipt Date: 20200728
  Transmission Date: 20201102
  Serious: Yes (Hospitalization)
  Sender: FDA-Public Use
  Company Number: US-ROCHE-2578781

PATIENT
  Age: 78 Year
  Sex: Male
  Weight: 113.4 kg

DRUGS (16)
  1. MELATONIN [Concomitant]
     Active Substance: MELATONIN
  2. XL184 [Suspect]
     Active Substance: CABOZANTINIB
     Indication: HEPATOCELLULAR CARCINOMA
     Route: 048
     Dates: start: 20200130, end: 20200323
  3. EPLERENONE. [Concomitant]
     Active Substance: EPLERENONE
  4. ATEZOLIZUMAB. [Suspect]
     Active Substance: ATEZOLIZUMAB
     Indication: HEPATOCELLULAR CARCINOMA
     Route: 042
     Dates: start: 20200130
  5. CARBOXYMETHYLCELLULOSE [Concomitant]
     Active Substance: CARBOXYMETHYLCELLULOSE
  6. DEXAMETHASONE. [Concomitant]
     Active Substance: DEXAMETHASONE
  7. FEXOFENADINE [Concomitant]
     Active Substance: FEXOFENADINE HYDROCHLORIDE
  8. XL184 [Suspect]
     Active Substance: CABOZANTINIB
     Route: 048
     Dates: start: 20200422
  9. PREDNISONE. [Concomitant]
     Active Substance: PREDNISONE
  10. FUROSEMIDE. [Concomitant]
     Active Substance: FUROSEMIDE
  11. DIPHENHYDRAMINE HCL [Concomitant]
     Active Substance: DIPHENHYDRAMINE HYDROCHLORIDE
  12. METFORMIN HCL [Concomitant]
     Active Substance: METFORMIN HYDROCHLORIDE
  13. SILDENAFIL CITRATE. [Concomitant]
     Active Substance: SILDENAFIL CITRATE
  14. SYNTHROID [Concomitant]
     Active Substance: LEVOTHYROXINE SODIUM
  15. NADOLOL. [Concomitant]
     Active Substance: NADOLOL
  16. PANTOPRAZOLE [Concomitant]
     Active Substance: PANTOPRAZOLE

REACTIONS (1)
  - Hepatic encephalopathy [Recovered/Resolved]

NARRATIVE: CASE EVENT DATE: 20200323
